FAERS Safety Report 8449564-1 (Version None)
Quarter: 2012Q2

REPORT INFORMATION
  Report Type: 
  Country: None (occurrence: None)
  Receive Date: 20120620
  Receipt Date: 20120604
  Transmission Date: 20120825
  Serious: Yes (Other)
  Sender: FDA-Public Use
  Company Number: US-JNJCP-30000110361

PATIENT
  Age: 67 Year
  Sex: Male
  Weight: 84 kg

DRUGS (2)
  1. NONE [Concomitant]
  2. NTG ULTIMATE SPORT SUNBLOCK SPRY SPF100 USA NTULS1US [Suspect]
     Dosage: ENOUGH TO COVER HIS BODY USED ONLY ONE TIME
     Route: 061
     Dates: start: 20120604, end: 20120604

REACTIONS (3)
  - BLOOD PRESSURE DECREASED [None]
  - APPLICATION SITE PARAESTHESIA [None]
  - DIZZINESS [None]
